FAERS Safety Report 9396732 (Version 2)
Quarter: 2013Q4

REPORT INFORMATION
  Report Type: Spontaneous
  Country: JP (occurrence: JP)
  Receive Date: 20130712
  Receipt Date: 20131008
  Transmission Date: 20140711
  Serious: Yes (Other)
  Sender: FDA-Public Use
  Company Number: JP-ROCHE-1245944

PATIENT
  Age: 65 Year
  Sex: Male

DRUGS (9)
  1. CELLCEPT [Suspect]
     Indication: PROPHYLAXIS AGAINST TRANSPLANT REJECTION
     Dosage: DOSAGE IS UNCERTAIN.
     Route: 048
     Dates: start: 201005
  2. TACROLIMUS HYDRATE [Suspect]
     Indication: PROPHYLAXIS AGAINST TRANSPLANT REJECTION
     Route: 048
     Dates: start: 201005, end: 201212
  3. TACROLIMUS HYDRATE [Suspect]
     Indication: PROPHYLAXIS AGAINST TRANSPLANT REJECTION
     Route: 048
     Dates: start: 201212
  4. CICLOSPORIN [Suspect]
     Indication: PROPHYLAXIS AGAINST TRANSPLANT REJECTION
     Dosage: DOSAGE IS UNCERTAIN.
     Route: 065
     Dates: start: 2008, end: 201005
  5. EVEROLIMUS [Concomitant]
     Indication: PROPHYLAXIS AGAINST TRANSPLANT REJECTION
     Dosage: DOSAGE IS UNCERTAIN.
     Route: 065
     Dates: start: 2008, end: 201005
  6. EVEROLIMUS [Concomitant]
     Indication: KIDNEY TRANSPLANT REJECTION
     Route: 065
     Dates: start: 201212
  7. PREDNISOLONE [Concomitant]
     Indication: PROPHYLAXIS AGAINST TRANSPLANT REJECTION
     Dosage: DOSAGE IS UNCERTAIN.
     Route: 065
     Dates: start: 2008
  8. BASILIXIMAB [Concomitant]
     Indication: PROPHYLAXIS AGAINST TRANSPLANT REJECTION
     Dosage: DOSAGE IS UNCERTAIN.
     Route: 065
     Dates: start: 2008
  9. AZILSARTAN [Concomitant]
     Route: 065
     Dates: start: 201210

REACTIONS (5)
  - Glomerulonephritis [Unknown]
  - Nephropathy toxic [Unknown]
  - Varicella [Unknown]
  - Endophthalmitis [Unknown]
  - Viral test positive [Unknown]
